FAERS Safety Report 21042711 (Version 1)
Quarter: 2022Q3

REPORT INFORMATION
  Report Type: Spontaneous
  Country: US (occurrence: None)
  Receive Date: 20220704
  Receipt Date: 20220704
  Transmission Date: 20221027
  Serious: Yes (Other)
  Sender: FDA-Public Use
  Company Number: None

PATIENT
  Age: 42 Year
  Sex: Female
  Weight: 58.05 kg

DRUGS (9)
  1. PAXLOVID [Suspect]
     Active Substance: NIRMATRELVIR\RITONAVIR
     Indication: COVID-19
     Dosage: FREQUENCY : TWICE A DAY;?
     Route: 048
     Dates: start: 20220701, end: 20220703
  2. METFORMIN [Concomitant]
     Active Substance: METFORMIN HYDROCHLORIDE
     Dates: start: 20090101
  3. TOPAMAX [Concomitant]
     Active Substance: TOPIRAMATE
     Dates: start: 20090101
  4. ALBUTEROL [Concomitant]
     Active Substance: ALBUTEROL
     Dates: start: 20000101
  5. AMBIEN [Concomitant]
     Active Substance: ZOLPIDEM TARTRATE
     Dates: start: 20030101
  6. VITAMIN D [Concomitant]
     Active Substance: VITAMIN D NOS
     Dates: start: 20160101
  7. VITAMINS [Concomitant]
     Active Substance: VITAMINS
     Dates: start: 20160101
  8. CALCIUM [Concomitant]
     Active Substance: CALCIUM
     Dates: start: 20160101
  9. LORAZEPAM [Concomitant]
     Active Substance: LORAZEPAM
     Dates: start: 20090101

REACTIONS (3)
  - Rash [None]
  - Pain [None]
  - Taste disorder [None]

NARRATIVE: CASE EVENT DATE: 20220703
